FAERS Safety Report 16874830 (Version 1)
Quarter: 2019Q4

REPORT INFORMATION
  Report Type: Spontaneous
  Country: US (occurrence: US)
  Receive Date: 20191001
  Receipt Date: 20191001
  Transmission Date: 20200122
  Serious: No
  Sender: FDA-Public Use
  Company Number: US-TEVA-2019-US-1115056

PATIENT
  Age: 58 Year
  Sex: Male

DRUGS (1)
  1. BUSPIRONE HYDROCHLORIDE TABLET TEVA [Suspect]
     Active Substance: BUSPIRONE HYDROCHLORIDE
     Route: 065

REACTIONS (5)
  - Dysuria [Unknown]
  - Genital pain [Unknown]
  - Abdominal pain upper [Unknown]
  - Dyspnoea [Unknown]
  - Product substitution issue [Unknown]

NARRATIVE: CASE EVENT DATE: 20190922
